FAERS Safety Report 9694264 (Version 1)
Quarter: 2013Q4

REPORT INFORMATION
  Report Type: Spontaneous
  Country: US (occurrence: US)
  Receive Date: 20131118
  Receipt Date: 20131118
  Transmission Date: 20140711
  Serious: No
  Sender: FDA-Public Use
  Company Number: US-PFIZER INC-2013324153

PATIENT
  Age: 68 Year
  Sex: Female
  Weight: 72.56 kg

DRUGS (4)
  1. ADVIL [Suspect]
     Indication: ARTHRALGIA
     Dosage: UNK, EVERY 4 HOURS
  2. MOTRIN [Suspect]
     Indication: ARTHRALGIA
     Dosage: UNK
  3. PERCOCET [Suspect]
     Indication: ARTHRALGIA
     Dosage: UNK
  4. FASLODEX [Suspect]
     Indication: BREAST CANCER FEMALE
     Dosage: UNK

REACTIONS (2)
  - Drug ineffective [Unknown]
  - Arthralgia [Unknown]
